FAERS Safety Report 9004472 (Version 1)
Quarter: 2013Q1

REPORT INFORMATION
  Report Type: Spontaneous
  Country: JP (occurrence: JP)
  Receive Date: 20130108
  Receipt Date: 20130108
  Transmission Date: 20140127
  Serious: Yes (Death)
  Sender: FDA-Public Use
  Company Number: JP-ROCHE-1164591

PATIENT
  Age: 62 Year
  Sex: Female
  Weight: 36 kg

DRUGS (1)
  1. XELODA [Suspect]
     Indication: BREAST CANCER METASTATIC
     Dosage: DOSAGE IS UNCERTAIN.
     Route: 048
     Dates: start: 20110813, end: 20111004

REACTIONS (2)
  - Breast cancer metastatic [Fatal]
  - Palmar-plantar erythrodysaesthesia syndrome [Recovered/Resolved]
